FAERS Safety Report 5362624-7 (Version None)
Quarter: 2007Q2

REPORT INFORMATION
  Report Type: 
  Country: None (occurrence: None)
  Receive Date: 20070619
  Receipt Date: 20070607
  Transmission Date: 20071010
  Serious: Yes (Hospitalization, Other)
  Sender: FDA-Public Use
  Company Number: US-PFIZER INC-2006129894

PATIENT
  Sex: Male
  Weight: 86.2 kg

DRUGS (2)
  1. BEXTRA [Suspect]
     Indication: OSTEOARTHRITIS
     Route: 048
  2. BEXTRA [Suspect]

REACTIONS (4)
  - ANXIETY [None]
  - CEREBELLAR INFARCTION [None]
  - CORONARY ARTERY OCCLUSION [None]
  - DEPRESSION [None]
